FAERS Safety Report 4967118-6 (Version None)
Quarter: 2006Q2

REPORT INFORMATION
  Report Type: 
  Country: None (occurrence: None)
  Receive Date: 20060410
  Receipt Date: 20060330
  Transmission Date: 20061013
  Serious: Yes (Hospitalization)
  Sender: FDA-Public Use
  Company Number: CA-BOEHRINGER INGELHEIM PHARMACEUTICALS, INC.-2006-CN-00188CN

PATIENT
  Sex: Female
  Weight: 113.4 kg

DRUGS (11)
  1. MICARDIS [Suspect]
     Indication: HYPERTENSION
     Route: 048
     Dates: start: 20050901
  2. SYNTHROID [Concomitant]
     Indication: HYPOTHYROIDISM
     Route: 048
     Dates: start: 19760101
  3. AMITRIPTYLINE HCL [Concomitant]
     Indication: MYALGIA
     Route: 048
     Dates: start: 19940101
  4. AMITRIPTYLINE HCL [Concomitant]
     Indication: INSOMNIA
  5. ALLOPURINOL [Concomitant]
     Indication: GOUT
     Route: 048
     Dates: start: 19960101
  6. FUROSEMIDE [Concomitant]
     Indication: FLUID RETENTION
     Route: 048
     Dates: start: 20050101
  7. RENEDIL [Concomitant]
     Indication: BLOOD PRESSURE
     Route: 048
     Dates: start: 20050101
  8. METOPROLOL [Concomitant]
     Indication: HEART RATE DECREASED
     Route: 048
     Dates: start: 20060201
  9. METFORMIN [Concomitant]
     Indication: DIABETES MELLITUS
     Route: 048
     Dates: start: 20040101
  10. AVANDIA [Concomitant]
     Indication: DIABETES MELLITUS
     Route: 048
     Dates: start: 20060215
  11. DIAMICRON [Concomitant]
     Indication: DIABETES MELLITUS
     Route: 048
     Dates: start: 20060215

REACTIONS (5)
  - CARDIAC FAILURE CONGESTIVE [None]
  - DEHYDRATION [None]
  - DYSPNOEA [None]
  - OEDEMA PERIPHERAL [None]
  - SKIN DISCOLOURATION [None]
